FAERS Safety Report 23819673 (Version 3)
Quarter: 2024Q2

REPORT INFORMATION
  Report Type: Spontaneous
  Country: US (occurrence: None)
  Receive Date: 20240506
  Receipt Date: 20240611
  Transmission Date: 20240716
  Serious: No
  Sender: FDA-Public Use
  Company Number: US-Umedica-000023

PATIENT
  Age: 69 Year
  Sex: Female

DRUGS (7)
  1. ROSUVASTATIN CALCIUM [Suspect]
     Active Substance: ROSUVASTATIN CALCIUM
     Indication: Blood cholesterol
     Dosage: SMALLER SIZED PILL
     Route: 048
     Dates: start: 202404, end: 202405
  2. PREDNISOLONE [Concomitant]
     Active Substance: PREDNISOLONE
     Indication: Eye disorder
     Dosage: EYE DROPS
  3. DIAMOX SEQUELS [Concomitant]
     Active Substance: ACETAZOLAMIDE
  4. TIMOLOL [Concomitant]
     Active Substance: TIMOLOL
     Indication: Intraocular pressure test
  5. PROLENSA [Concomitant]
     Active Substance: BROMFENAC SODIUM
     Indication: Eye disorder
     Dosage: EYE DROPS
  6. EZETIMIBE [Concomitant]
     Active Substance: EZETIMIBE
  7. ROSUVASTATIN CALCIUM [Suspect]
     Active Substance: ROSUVASTATIN CALCIUM
     Indication: Blood cholesterol
     Dosage: DRUG RESTARTED
     Route: 048
     Dates: start: 202405

REACTIONS (3)
  - Paraesthesia [Recovering/Resolving]
  - Blood pressure increased [Unknown]
  - Hypoaesthesia [Recovering/Resolving]

NARRATIVE: CASE EVENT DATE: 20240501
